FAERS Safety Report 19654846 (Version 1)
Quarter: 2021Q3

REPORT INFORMATION
  Report Type: Spontaneous
  Country: US (occurrence: US)
  Receive Date: 20210730
  Receipt Date: 20210730
  Transmission Date: 20211014
  Serious: Yes (Other)
  Sender: FDA-Public Use
  Company Number: None

PATIENT
  Age: 74 Year
  Sex: Male
  Weight: 82.1 kg

DRUGS (5)
  1. CALCIUM CARBONATE. [Suspect]
     Active Substance: CALCIUM CARBONATE
  2. TAMSULOSIN 0.4 MG [Concomitant]
     Active Substance: TAMSULOSIN
     Dates: start: 20180604
  3. TRAZODONE [Concomitant]
     Active Substance: TRAZODONE HYDROCHLORIDE
  4. ATORVASTATIN 20 MG [Concomitant]
     Active Substance: ATORVASTATIN
     Dates: start: 20201125
  5. LISINOPRIL 20 MG [Concomitant]
     Active Substance: LISINOPRIL
     Dates: start: 20201125

REACTIONS (3)
  - Eye swelling [None]
  - Lip swelling [None]
  - Product substitution issue [None]

NARRATIVE: CASE EVENT DATE: 20210713
